FAERS Safety Report 20396447 (Version 2)
Quarter: 2022Q1

REPORT INFORMATION
  Report Type: Spontaneous
  Country: US (occurrence: US)
  Receive Date: 20220130
  Receipt Date: 20220201
  Transmission Date: 20220423
  Serious: No
  Sender: FDA-Public Use
  Company Number: US-ABBVIE-21K-163-3716549-00

PATIENT
  Age: 70 Year
  Sex: Female
  Weight: 90.800 kg

DRUGS (12)
  1. HUMIRA [Suspect]
     Active Substance: ADALIMUMAB
     Indication: Psoriatic arthropathy
     Route: 058
     Dates: start: 20201219
  2. METHOTREXATE [Concomitant]
     Active Substance: METHOTREXATE
     Indication: Psoriatic arthropathy
  3. AIMOVIG [Concomitant]
     Active Substance: ERENUMAB-AOOE
     Indication: Migraine
  4. IMITREX [Concomitant]
     Active Substance: SUMATRIPTAN SUCCINATE
     Indication: Migraine
  5. GABAPENTIN [Concomitant]
     Active Substance: GABAPENTIN
     Indication: Fibromyalgia
  6. OMEPRAZOLE [Concomitant]
     Active Substance: OMEPRAZOLE
     Indication: Gastrooesophageal reflux disease
  7. MONTELUKAST [Concomitant]
     Active Substance: MONTELUKAST SODIUM
     Indication: Drug hypersensitivity
  8. BENADRYL [Concomitant]
     Active Substance: DIPHENHYDRAMINE HYDROCHLORIDE
     Indication: Allergy prophylaxis
  9. ACYCLOVIR [Concomitant]
     Active Substance: ACYCLOVIR
     Indication: Antiviral prophylaxis
  10. LOSARTAN [Concomitant]
     Active Substance: LOSARTAN
     Indication: Hypertension
  11. SIMVASTATIN [Concomitant]
     Active Substance: SIMVASTATIN
     Indication: Blood cholesterol increased
  12. FOLIC ACID [Concomitant]
     Active Substance: FOLIC ACID
     Indication: Supplementation therapy

REACTIONS (2)
  - Arthralgia [Unknown]
  - Therapeutic response shortened [Unknown]

NARRATIVE: CASE EVENT DATE: 20201230
